FAERS Safety Report 10595810 (Version 2)
Quarter: 2015Q2

REPORT INFORMATION
  Report Type: Spontaneous
  Country: IT (occurrence: IT)
  Receive Date: 20141120
  Receipt Date: 20150410
  Transmission Date: 20150821
  Serious: Yes (Other)
  Sender: FDA-Public Use
  Company Number: IT-PFIZER INC-2014316385

PATIENT
  Age: 39 Year
  Sex: Male

DRUGS (1)
  1. BASSADO [Suspect]
     Active Substance: DOXYCYCLINE HYCLATE
     Indication: TOOTH INFECTION
     Dosage: 200 MG, DAILY
     Route: 048
     Dates: start: 20140519, end: 20140520

REACTIONS (2)
  - Medication error [Recovered/Resolved]
  - Malaise [Recovered/Resolved]

NARRATIVE: CASE EVENT DATE: 20140520
